FAERS Safety Report 5496613-9 (Version None)
Quarter: 2007Q4

REPORT INFORMATION
  Report Type: 
  Country: None (occurrence: None)
  Receive Date: 20071025
  Receipt Date: 20070625
  Transmission Date: 20080405
  Serious: No
  Sender: FDA-Public Use
  Company Number: A0659992A

PATIENT
  Age: 76 Year
  Sex: Male

DRUGS (5)
  1. ADVAIR DISKUS 100/50 [Suspect]
     Indication: ASTHMA
     Route: 055
  2. ADVAIR DISKUS 100/50 [Suspect]
     Dosage: 2PUFF TWICE PER DAY
     Route: 055
  3. FORADIL [Concomitant]
  4. QVAR 40 [Concomitant]
  5. ZETIA [Concomitant]

REACTIONS (1)
  - DRY MOUTH [None]
